FAERS Safety Report 5166024-4 (Version None)
Quarter: 2006Q4

REPORT INFORMATION
  Report Type: 
  Country: None (occurrence: None)
  Receive Date: 20061128
  Receipt Date: 20061115
  Transmission Date: 20070319
  Serious: Yes (Hospitalization)
  Sender: FDA-Public Use
  Company Number: S06-USA-03733-01

PATIENT
  Age: 92 Year
  Sex: Female
  Weight: 61.6892 kg

DRUGS (10)
  1. NAMENDA [Suspect]
     Indication: DEMENTIA ALZHEIMER'S TYPE
     Dosage: 10 MG BID PO
     Route: 048
     Dates: start: 20040201, end: 20060501
  2. NAMENDA [Suspect]
     Indication: DEMENTIA ALZHEIMER'S TYPE
     Dosage: 10 MG BID PO
     Route: 048
     Dates: start: 20060501, end: 20060801
  3. NAMENDA [Suspect]
     Indication: DEMENTIA ALZHEIMER'S TYPE
     Dosage: 5 MG QD PO
     Route: 048
     Dates: start: 20060801, end: 20060801
  4. NAMENDA [Suspect]
     Indication: DEMENTIA ALZHEIMER'S TYPE
     Dosage: 10 MG BID PO
     Route: 048
     Dates: start: 20060801, end: 20061002
  5. NAMENA (MEMANTINE) [Suspect]
     Indication: DEMENTIA ALZHEIMER'S TYPE
     Dosage: 10 MG QD PO
     Route: 048
     Dates: start: 20061003
  6. FLORINEF [Suspect]
     Indication: HYPOTENSION
     Dosage: 0.1 MG BID
     Dates: start: 20050101, end: 20061004
  7. FLORINEF [Suspect]
     Indication: HYPOTENSION
     Dosage: 0.1 MG TID
     Dates: start: 20061005
  8. GALANTAMINE HYDROBROMIDE [Concomitant]
  9. LIPITOR [Concomitant]
  10. BATRIM (TRIMETHOPRIM AND SULFAMETHOXAZOLE) [Concomitant]

REACTIONS (5)
  - BLOOD POTASSIUM DECREASED [None]
  - DEHYDRATION [None]
  - FATIGUE [None]
  - GASTRIC ULCER HELICOBACTER [None]
  - SOMNOLENCE [None]
